FAERS Safety Report 7956977-0 (Version None)
Quarter: 2011Q4

REPORT INFORMATION
  Report Type: 
  Country: None (occurrence: None)
  Receive Date: 20111205
  Receipt Date: 20111205
  Transmission Date: 20120403
  Serious: Yes (Hospitalization)
  Sender: FDA-Public Use
  Company Number: None

PATIENT
  Age: 81 Year
  Sex: Female
  Weight: 63.4 kg

DRUGS (1)
  1. DAPTOMYCIN [Suspect]
     Indication: IMPLANT SITE INFECTION
     Dosage: 372 MG
     Route: 042
     Dates: start: 20111119, end: 20111126

REACTIONS (1)
  - RASH PRURITIC [None]
